FAERS Safety Report 23156078 (Version 1)
Quarter: 2023Q4

REPORT INFORMATION
  Report Type: Spontaneous
  Country: KR (occurrence: KR)
  Receive Date: 20231107
  Receipt Date: 20231107
  Transmission Date: 20240110
  Serious: Yes (Hospitalization)
  Sender: FDA-Public Use
  Company Number: KR-BEXIMCO-2023BEX00069

PATIENT
  Age: 40 Year
  Sex: Female

DRUGS (4)
  1. BACLOFEN [Suspect]
     Active Substance: BACLOFEN
     Indication: Headache
     Dosage: 10 MG
  2. AFLOQUALONE [Suspect]
     Active Substance: AFLOQUALONE
     Indication: Headache
     Dosage: 10 MG
  3. DEXIBUPROFEN [Concomitant]
     Active Substance: DEXIBUPROFEN
     Indication: Headache
     Dosage: 400 MG, 2X/DAY
  4. AMITRIPTYLINE [Concomitant]
     Active Substance: AMITRIPTYLINE
     Indication: Headache
     Dosage: 5 MG, 1X/DAY

REACTIONS (5)
  - Intracranial pressure increased [Unknown]
  - Coma [Recovering/Resolving]
  - Drug interaction [Recovering/Resolving]
  - Seizure [Recovered/Resolved]
  - Toxicity to various agents [Recovering/Resolving]
